FAERS Safety Report 21203363 (Version 1)
Quarter: 2022Q3

REPORT INFORMATION
  Report Type: Other
  Country: US (occurrence: US)
  Receive Date: 20220811
  Receipt Date: 20220811
  Transmission Date: 20221026
  Serious: Yes (Death)
  Sender: FDA-Public Use
  Company Number: US-UROVANT SCIENCES GMBH-202208-URV-001071

PATIENT
  Age: 96 Year
  Sex: Female

DRUGS (1)
  1. GEMTESA [Suspect]
     Active Substance: VIBEGRON
     Indication: Micturition urgency
     Dosage: 75 MG, QD
     Route: 048
     Dates: start: 202202, end: 20220723

REACTIONS (1)
  - Death [Fatal]

NARRATIVE: CASE EVENT DATE: 20220723
